FAERS Safety Report 10452147 (Version 1)
Quarter: 2014Q3

REPORT INFORMATION
  Report Type: Spontaneous
  Country: US (occurrence: None)
  Receive Date: 20140912
  Receipt Date: 20140912
  Transmission Date: 20150326
  Serious: No
  Sender: FDA-Public Use
  Company Number: None

PATIENT
  Age: 66 Year
  Sex: Female

DRUGS (7)
  1. TECFIDERA [Suspect]
     Active Substance: DIMETHYL FUMARATE
     Indication: MULTIPLE SCLEROSIS
     Dosage: 1 CAPSULE, BID, ORAL
     Route: 048
  2. VITAMIN C [Concomitant]
     Active Substance: ASCORBIC ACID
  3. IRON [Concomitant]
     Active Substance: IRON
  4. MULTI-V [Concomitant]
  5. FISH OIL [Concomitant]
     Active Substance: FISH OIL
  6. ZETIA [Concomitant]
     Active Substance: EZETIMIBE
  7. GARLIC. [Concomitant]
     Active Substance: GARLIC

REACTIONS (1)
  - Rash [None]

NARRATIVE: CASE EVENT DATE: 20140911
